FAERS Safety Report 5181995-8 (Version None)
Quarter: 2006Q4

REPORT INFORMATION
  Report Type: 
  Country: None (occurrence: None)
  Receive Date: 20061220
  Receipt Date: 20060417
  Transmission Date: 20070319
  Serious: No
  Sender: FDA-Public Use
  Company Number: US-GLAXOSMITHKLINE-A0602000A

PATIENT
  Age: 54 Year

DRUGS (1)
  1. COMMIT [Suspect]
     Dates: start: 20060412

REACTIONS (2)
  - FLATULENCE [None]
  - NICOTINE DEPENDENCE [None]
